FAERS Safety Report 17064351 (Version 1)
Quarter: 2019Q4

REPORT INFORMATION
  Report Type: Spontaneous
  Country: JP (occurrence: JP)
  Receive Date: 20191122
  Receipt Date: 20191122
  Transmission Date: 20200122
  Serious: Yes (Other)
  Sender: FDA-Public Use
  Company Number: JP-PFIZER INC-2019499586

PATIENT
  Age: 90 Year
  Sex: Female

DRUGS (1)
  1. ZITHROMAC SR 2G [Suspect]
     Active Substance: AZITHROMYCIN MONOHYDRATE
     Dosage: 1 DF, UNK
     Dates: start: 201806, end: 201806

REACTIONS (1)
  - Drug eruption [Unknown]
